FAERS Safety Report 10279448 (Version 1)
Quarter: 2014Q3

REPORT INFORMATION
  Report Type: Spontaneous
  Country: BR (occurrence: BR)
  Receive Date: 20140707
  Receipt Date: 20140707
  Transmission Date: 20150326
  Serious: Yes (Hospitalization, Other)
  Sender: FDA-Public Use
  Company Number: BR-ROCHE-1430160

PATIENT
  Sex: Male
  Weight: 93 kg

DRUGS (1)
  1. RIVOTRIL [Suspect]
     Active Substance: CLONAZEPAM
     Indication: PANIC ATTACK
     Dosage: ADMINISTERED AT NIGHT
     Route: 065

REACTIONS (6)
  - Osteosarcoma [Unknown]
  - Gastritis [Unknown]
  - Malignant melanoma [Unknown]
  - Metastases to bone [Unknown]
  - Device dislocation [Recovered/Resolved]
  - Device related infection [Unknown]
